FAERS Safety Report 19385993 (Version 1)
Quarter: 2021Q2

REPORT INFORMATION
  Report Type: Spontaneous
  Country: US (occurrence: US)
  Receive Date: 20210608
  Receipt Date: 20210608
  Transmission Date: 20210717
  Serious: No
  Sender: FDA-Public Use
  Company Number: US-AUROBINDO-AUR-APL-2020-039837

PATIENT
  Age: 62 Year
  Sex: Female
  Weight: 72.5 kg

DRUGS (3)
  1. XANAX [Concomitant]
     Active Substance: ALPRAZOLAM
     Indication: PRODUCT USED FOR UNKNOWN INDICATION
     Dosage: 0.5 MILLIGRAM, TWO TIMES A DAY,AS NEEDED
     Route: 065
  2. VENLAFAXINE HYDROCHLORIDE EXTENDED?RELEASE CAPSULES 75MG [Suspect]
     Active Substance: VENLAFAXINE HYDROCHLORIDE
     Indication: DEPRESSION
     Dosage: 37.5 MILLIGRAM, ONCE A DAY
     Route: 065
  3. VENLAFAXINE HYDROCHLORIDE EXTENDED?RELEASE CAPSULES 75MG [Suspect]
     Active Substance: VENLAFAXINE HYDROCHLORIDE
     Indication: ANXIETY
     Dosage: 75 DOSAGE FORM, ONCE A DAY
     Route: 065
     Dates: end: 202007

REACTIONS (15)
  - Hypoaesthesia oral [Recovering/Resolving]
  - Dysstasia [Recovering/Resolving]
  - Nausea [Recovering/Resolving]
  - Vomiting [Recovering/Resolving]
  - Hunger [Recovering/Resolving]
  - Hypoaesthesia [Not Recovered/Not Resolved]
  - Weight increased [Recovering/Resolving]
  - Myalgia [Recovering/Resolving]
  - Anxiety [Unknown]
  - Somnolence [Recovering/Resolving]
  - Fatigue [Unknown]
  - Paraesthesia oral [Recovering/Resolving]
  - Paraesthesia [Not Recovered/Not Resolved]
  - Ataxia [Recovering/Resolving]
  - Balance disorder [Recovering/Resolving]
